FAERS Safety Report 12120746 (Version 1)
Quarter: 2016Q1

REPORT INFORMATION
  Report Type: Spontaneous
  Country: US (occurrence: US)
  Receive Date: 20160226
  Receipt Date: 20160226
  Transmission Date: 20160526
  Serious: No
  Sender: FDA-Public Use
  Company Number: US-ALLERGAN-1317751US

PATIENT
  Age: 90 Year
  Sex: Female

DRUGS (2)
  1. REFRESH OPTIVE [Suspect]
     Active Substance: CARBOXYMETHYLCELLULOSE SODIUM\GLYCERIN
     Indication: DRY EYE
     Dosage: 2 DOSES ONLY
     Route: 047
     Dates: start: 20131108, end: 20131109
  2. LUBRICATING EYEDROPS NOS [Concomitant]
     Indication: PRODUCT USED FOR UNKNOWN INDICATION

REACTIONS (7)
  - Fear [Unknown]
  - Pruritus [Unknown]
  - Eye pruritus [Unknown]
  - Skin burning sensation [Unknown]
  - Expired product administered [Unknown]
  - Eye irritation [Unknown]
  - Vision blurred [Unknown]
